FAERS Safety Report 14074433 (Version 1)
Quarter: 2017Q4

REPORT INFORMATION
  Report Type: Spontaneous
  Country: US (occurrence: US)
  Receive Date: 20171011
  Receipt Date: 20171011
  Transmission Date: 20180321
  Serious: Yes (Other)
  Sender: FDA-Public Use
  Company Number: US-ASTRAZENECA-2017SF03409

PATIENT
  Age: 71 Year
  Sex: Female
  Weight: 64 kg

DRUGS (7)
  1. LANSOPRAZOLE. [Concomitant]
     Active Substance: LANSOPRAZOLE
  2. KLONOPIN [Concomitant]
     Active Substance: CLONAZEPAM
  3. CARAFATE [Concomitant]
     Active Substance: SUCRALFATE
     Indication: GASTRITIS EROSIVE
     Route: 048
     Dates: start: 20170810, end: 20170820
  4. PREVACID [Concomitant]
     Active Substance: LANSOPRAZOLE
  5. SYNTHROID [Concomitant]
     Active Substance: LEVOTHYROXINE SODIUM
     Dosage: UNK
  6. NEXIUM 24HR [Suspect]
     Active Substance: ESOMEPRAZOLE MAGNESIUM
     Indication: GASTRITIS
     Route: 048
     Dates: start: 20170810, end: 201709
  7. DOXYCYCLINE. [Concomitant]
     Active Substance: DOXYCYCLINE
     Dosage: UNK

REACTIONS (4)
  - Intentional product misuse [Unknown]
  - Helicobacter gastritis [Recovering/Resolving]
  - Dyspnoea [Unknown]
  - Incorrect drug administration duration [Unknown]

NARRATIVE: CASE EVENT DATE: 20170810
